FAERS Safety Report 17272111 (Version 1)
Quarter: 2020Q1

REPORT INFORMATION
  Report Type: Report from Study
  Country: None (occurrence: BR)
  Receive Date: 20200115
  Receipt Date: 20200115
  Transmission Date: 20200409
  Serious: Yes (Hospitalization, Other)
  Sender: FDA-Public Use
  Company Number: BR-ABBVIE-20K-020-3229211-00

PATIENT
  Sex: Male
  Weight: 4.46 kg

DRUGS (2)
  1. PHENOBARBITAL. [Concomitant]
     Active Substance: PHENOBARBITAL
     Indication: SEIZURE PROPHYLAXIS
     Dates: start: 201908
  2. SYNAGIS [Suspect]
     Active Substance: PALIVIZUMAB
     Indication: BRONCHOPULMONARY DYSPLASIA
     Route: 050
     Dates: start: 201908

REACTIONS (2)
  - Hospitalisation [Recovered/Resolved]
  - Inguinal hernia [Unknown]
